FAERS Safety Report 14244696 (Version 1)
Quarter: 2017Q4

REPORT INFORMATION
  Report Type: Spontaneous
  Country: BR (occurrence: BR)
  Receive Date: 20171201
  Receipt Date: 20171201
  Transmission Date: 20180321
  Serious: Yes (Other)
  Sender: FDA-Public Use
  Company Number: BR-BIOMARINAP-BR-2017-115973

PATIENT
  Sex: Male
  Weight: 20 kg

DRUGS (2)
  1. VIMIZIM [Suspect]
     Active Substance: ELOSULFASE ALFA
     Indication: MUCOPOLYSACCHARIDOSIS IV
     Dosage: UNK, QW
     Route: 042
  2. CEPHALEXIN                         /00145501/ [Concomitant]
     Active Substance: CEPHALEXIN
     Indication: INFLUENZA LIKE ILLNESS
     Dosage: 5 ML, UNK
     Dates: start: 20171024

REACTIONS (2)
  - Cardiac dysfunction [Unknown]
  - Cardiomyopathy [Unknown]
